FAERS Safety Report 6178740-6 (Version None)
Quarter: 2009Q2

REPORT INFORMATION
  Report Type: 
  Country: None (occurrence: None)
  Receive Date: 20090430
  Receipt Date: 20090420
  Transmission Date: 20091009
  Serious: Yes (Hospitalization)
  Sender: FDA-Public Use
  Company Number: CERZ-1000557

PATIENT
  Age: 30 Year
  Sex: Male

DRUGS (1)
  1. CEREZYME [Suspect]
     Indication: GAUCHER'S DISEASE
     Dosage: INTRAVENOUS
     Route: 042

REACTIONS (6)
  - ANOREXIA [None]
  - BLOOD COUNT ABNORMAL [None]
  - HEADACHE [None]
  - NEUTROPENIA [None]
  - THROMBOCYTOPENIA [None]
  - VIRAL INFECTION [None]
